FAERS Safety Report 16202551 (Version 5)
Quarter: 2020Q3

REPORT INFORMATION
  Report Type: Spontaneous
  Country: US (occurrence: US)
  Receive Date: 20190416
  Receipt Date: 20200910
  Transmission Date: 20201102
  Serious: No
  Sender: FDA-Public Use
  Company Number: US-SA-2019SA105223

PATIENT

DRUGS (2)
  1. NEXPLANON [Concomitant]
     Active Substance: ETONOGESTREL
  2. DUPIXENT [Suspect]
     Active Substance: DUPILUMAB
     Indication: DERMATITIS ATOPIC
     Dosage: 300 MG, QOW
     Route: 058
     Dates: start: 20190226

REACTIONS (4)
  - Therapeutic response shortened [Not Recovered/Not Resolved]
  - Rash [Recovering/Resolving]
  - Rash [Not Recovered/Not Resolved]
  - Dermatitis atopic [Not Recovered/Not Resolved]

NARRATIVE: CASE EVENT DATE: 2019
